FAERS Safety Report 17994159 (Version 1)
Quarter: 2020Q3

REPORT INFORMATION
  Report Type: Spontaneous
  Country: US (occurrence: US)
  Receive Date: 20200707
  Receipt Date: 20200707
  Transmission Date: 20201103
  Serious: Yes (Hospitalization)
  Sender: FDA-Public Use
  Company Number: None

PATIENT
  Age: 53 Year
  Sex: Female

DRUGS (1)
  1. TRAZODONE (TRAZODONE HCL 50MG TAB) [Suspect]
     Active Substance: TRAZODONE HYDROCHLORIDE
     Indication: INSOMNIA
     Dates: start: 20200520, end: 20200606

REACTIONS (9)
  - Seizure [None]
  - Pain [None]
  - Poor quality sleep [None]
  - Depression [None]
  - Hyperglycaemia [None]
  - Therapy interrupted [None]
  - Stress [None]
  - Glucose urine present [None]
  - Anxiety [None]

NARRATIVE: CASE EVENT DATE: 20200605
